FAERS Safety Report 26021543 (Version 1)
Quarter: 2025Q4

REPORT INFORMATION
  Report Type: Spontaneous
  Country: EU (occurrence: EU)
  Receive Date: 20251110
  Receipt Date: 20251110
  Transmission Date: 20260118
  Serious: Yes (Death, Other)
  Sender: PFIZER
  Company Number: EU-ASTELLAS-2025-AER-060513

PATIENT
  Age: 75 Year
  Sex: Male

DRUGS (3)
  1. TALAZOPARIB [Suspect]
     Active Substance: TALAZOPARIB
     Dosage: UNK
     Route: 065
     Dates: start: 202404
  2. TALAZOPARIB [Suspect]
     Active Substance: TALAZOPARIB
     Dosage: REDUCED DOSE
     Route: 065
  3. ENZALUTAMIDE [Suspect]
     Active Substance: ENZALUTAMIDE
     Dosage: UNK
     Route: 065
     Dates: start: 202404

REACTIONS (8)
  - Death [Fatal]
  - Malignant neoplasm progression [Unknown]
  - Anaemia [Recovered/Resolved]
  - Dyspnoea exertional [Unknown]
  - Fatigue [Unknown]
  - Prostatic specific antigen increased [Unknown]
  - Apathy [Unknown]
  - Asthenia [Unknown]

NARRATIVE: CASE EVENT DATE: 20240510
